FAERS Safety Report 25393709 (Version 1)
Quarter: 2025Q2

REPORT INFORMATION
  Report Type: Report from Study
  Country: US (occurrence: US)
  Receive Date: 20250604
  Receipt Date: 20250604
  Transmission Date: 20250716
  Serious: Yes (Hospitalization, Other)
  Sender: BOEHRINGER INGELHEIM
  Company Number: US-BoehringerIngelheim-2024-BI-029363

PATIENT
  Sex: Female

DRUGS (2)
  1. OFEV [Suspect]
     Active Substance: NINTEDANIB
     Indication: Idiopathic pulmonary fibrosis
  2. ELIQUIS [Concomitant]
     Active Substance: APIXABAN
     Indication: Product used for unknown indication

REACTIONS (8)
  - Gastric haemorrhage [Unknown]
  - Fatigue [Not Recovered/Not Resolved]
  - Cardiac therapeutic procedure [Unknown]
  - Pyrexia [Unknown]
  - Chills [Unknown]
  - Malaise [Unknown]
  - Nausea [Unknown]
  - Dizziness [Not Recovered/Not Resolved]
